FAERS Safety Report 7773377-7 (Version None)
Quarter: 2011Q3

REPORT INFORMATION
  Report Type: 
  Country: None (occurrence: None)
  Receive Date: 20110922
  Receipt Date: 20110916
  Transmission Date: 20111222
  Serious: Yes (Hospitalization)
  Sender: FDA-Public Use
  Company Number: GB-AMGEN-GBRCT2011038956

PATIENT
  Age: 47 Year
  Sex: Female

DRUGS (12)
  1. PANITUMUMAB [Suspect]
     Indication: GASTROOESOPHAGEAL CANCER
     Dosage: UNK
     Dates: start: 20110208
  2. MINOCYCLINE HCL [Concomitant]
     Indication: ACNE
     Dosage: 100 MG, BID
     Dates: start: 20110301
  3. ACETAMINOPHEN [Concomitant]
     Indication: PAIN
     Dosage: 1 G, PRN
  4. CAPECITABINE [Concomitant]
     Indication: GASTROOESOPHAGEAL CANCER
     Dosage: UNK
     Dates: start: 20110208, end: 20110706
  5. NYSTATIN [Concomitant]
     Route: 048
  6. CETIRIZINE HCL [Concomitant]
     Indication: URTICARIA
     Dosage: 10 MG, QD
     Dates: start: 20110301
  7. HYDROCORTISONE [Concomitant]
     Dosage: UNK UNK, QD
  8. EPIRUBICIN [Concomitant]
     Indication: GASTROOESOPHAGEAL CANCER
     Dosage: UNK
     Dates: start: 20110208
  9. OXALIPLATIN [Concomitant]
     Indication: GASTROOESOPHAGEAL CANCER
     Dosage: UNK
     Dates: start: 20110208
  10. FLOXACILLIN SODIUM [Concomitant]
     Indication: PHLEBITIS
     Dosage: 500 MG, QD
     Dates: start: 20110725
  11. AVEENO [Concomitant]
     Dosage: UNK UNK, PRN
     Route: 061
     Dates: start: 20110307
  12. METOCLOPRAMIDE [Concomitant]
     Indication: NAUSEA
     Dosage: 10 MG, PRN

REACTIONS (1)
  - NEUTROPENIC SEPSIS [None]
